FAERS Safety Report 5222669-4 (Version None)
Quarter: 2007Q1

REPORT INFORMATION
  Report Type: 
  Country: None (occurrence: None)
  Receive Date: 20070124
  Receipt Date: 20070117
  Transmission Date: 20070707
  Serious: Yes (Other)
  Sender: FDA-Public Use
  Company Number: 2007S1000021

PATIENT
  Age: 34 Year
  Sex: Female

DRUGS (1)
  1. SORIATANE [Suspect]
     Indication: PSORIASIS
     Dosage: 20 MG;QD; PO
     Route: 048
     Dates: end: 20070101

REACTIONS (5)
  - BLOOD TRIGLYCERIDES INCREASED [None]
  - MUSCULOSKELETAL PAIN [None]
  - MYALGIA [None]
  - PYELONEPHRITIS [None]
  - WHITE BLOOD CELL COUNT INCREASED [None]
